FAERS Safety Report 24977352 (Version 2)
Quarter: 2025Q1

REPORT INFORMATION
  Report Type: Spontaneous
  Country: RU (occurrence: RU)
  Receive Date: 20250217
  Receipt Date: 20250219
  Transmission Date: 20250408
  Serious: Yes (Death)
  Sender: BOEHRINGER INGELHEIM
  Company Number: RU-BoehringerIngelheim-2025-BI-008610

PATIENT
  Sex: Female

DRUGS (1)
  1. MELOXICAM [Suspect]
     Active Substance: MELOXICAM
     Indication: Product used for unknown indication
     Dosage: DURATION OF TREATMENT: 5 DAYS

REACTIONS (2)
  - Cerebellar haemorrhage [Fatal]
  - Intracranial pressure increased [Fatal]
